FAERS Safety Report 10994623 (Version 1)
Quarter: 2015Q2

REPORT INFORMATION
  Report Type: Spontaneous
  Country: US (occurrence: None)
  Receive Date: 20150406
  Receipt Date: 20150406
  Transmission Date: 20150821
  Serious: Yes (Life-Threatening, Hospitalization)
  Sender: FDA-Public Use
  Company Number: None

PATIENT
  Age: 57 Year
  Sex: Female

DRUGS (2)
  1. LIDOCAINE HYDROCHLORIDE. [Suspect]
     Active Substance: LIDOCAINE HYDROCHLORIDE
     Indication: ENDOVENOUS ABLATION
     Dosage: 2ML AND 18 ML DULUTED TUMESCENT AND LOCAL
     Dates: start: 20150402, end: 20150402
  2. LIDOCAINE HYDROCHLORIDE. [Suspect]
     Active Substance: LIDOCAINE HYDROCHLORIDE
     Dosage: 2ML AND 18 ML DULUTED TUMESCENT AND LOCAL
     Dates: start: 20150402, end: 20150402

REACTIONS (12)
  - Respiratory tract oedema [None]
  - Skin burning sensation [None]
  - Tremor [None]
  - Chest pain [None]
  - Heart rate decreased [None]
  - Pruritus [None]
  - Blood pressure decreased [None]
  - Heart rate increased [None]
  - Oxygen saturation decreased [None]
  - Hyporesponsive to stimuli [None]
  - Toxicity to various agents [None]
  - Nausea [None]

NARRATIVE: CASE EVENT DATE: 20150402
